FAERS Safety Report 5058896-9 (Version None)
Quarter: 2006Q3

REPORT INFORMATION
  Report Type: 
  Country: None (occurrence: None)
  Receive Date: 20060721
  Receipt Date: 20050620
  Transmission Date: 20061208
  Serious: No
  Sender: FDA-Public Use
  Company Number: US-AMGEN-US139526

PATIENT
  Sex: Male

DRUGS (7)
  1. EPOGEN [Suspect]
     Indication: PRE-EXISTING DISEASE
     Route: 058
     Dates: start: 20000101
  2. MEDICINALPRODUCT NOT SPECIFIED BY SENDER [Concomitant]
     Route: 048
  3. MEDICINALPRODUCT NOT SPECIFIED BY SENDER [Concomitant]
  4. MEDICINALPRODUCT NOT SPECIFIED BY SENDER [Concomitant]
  5. MEDICINALPRODUCT NOT SPECIFIED BY SENDER [Concomitant]
  6. MEDICINALPRODUCT NOT SPECIFIED BY SENDER [Concomitant]
  7. MEDICINALPRODUCT NOT SPECIFIED BY SENDER [Concomitant]

REACTIONS (1)
  - INJECTION SITE HAEMORRHAGE [None]
